FAERS Safety Report 6115273-7 (Version None)
Quarter: 2009Q1

REPORT INFORMATION
  Report Type: 
  Country: None (occurrence: None)
  Receive Date: 20090313
  Receipt Date: 20090309
  Transmission Date: 20090719
  Serious: Yes (Other)
  Sender: FDA-Public Use
  Company Number: US-JNJFOC-20090301051

PATIENT

DRUGS (4)
  1. PREZISTA [Suspect]
     Indication: HIV INFECTION
     Route: 065
  2. INTELENCE [Suspect]
     Indication: HIV INFECTION
     Route: 065
  3. ISENTRESS [Suspect]
     Indication: HIV INFECTION
  4. BACTRIM [Suspect]
     Indication: DRUG USE FOR UNKNOWN INDICATION

REACTIONS (2)
  - ANGIOEDEMA [None]
  - RASH [None]
